FAERS Safety Report 13953933 (Version 1)
Quarter: 2017Q3

REPORT INFORMATION
  Report Type: Spontaneous
  Country: US (occurrence: None)
  Receive Date: 20170909
  Receipt Date: 20170909
  Transmission Date: 20171128
  Serious: No
  Sender: FDA-Public Use
  Company Number: None

PATIENT
  Age: 34 Year
  Sex: Male

DRUGS (1)
  1. GENVOYA [Suspect]
     Active Substance: COBICISTAT\ELVITEGRAVIR\EMTRICITABINE\TENOFOVIR ALAFENAMIDE FUMARATE
     Indication: HIV INFECTION
     Dosage: DOSE AMOUNT - 150MG/150MG/200MG
     Route: 048
     Dates: start: 20170119

REACTIONS (2)
  - Libido decreased [None]
  - Fatigue [None]

NARRATIVE: CASE EVENT DATE: 20170909
